FAERS Safety Report 4368757-6 (Version None)
Quarter: 2004Q2

REPORT INFORMATION
  Report Type: 
  Country: None (occurrence: None)
  Receive Date: 20040528
  Receipt Date: 20040518
  Transmission Date: 20050107
  Serious: Yes (Other)
  Sender: FDA-Public Use
  Company Number: 2004021523

PATIENT
  Age: 46 Year
  Sex: Female
  Weight: 74 kg

DRUGS (1)
  1. CYCLOKAPRON (TRANEXAMIC ACID) [Suspect]
     Indication: MENORRHAGIA
     Dosage: 500 MG 1-2 TABS TID, ORAL
     Route: 048
     Dates: start: 20040319

REACTIONS (5)
  - ARTERIAL SPASM [None]
  - EMBOLISM [None]
  - MIGRAINE [None]
  - SERUM FERRITIN DECREASED [None]
  - VISUAL DISTURBANCE [None]
